FAERS Safety Report 21602268 (Version 1)
Quarter: 2022Q4

REPORT INFORMATION
  Report Type: Spontaneous
  Country: US (occurrence: US)
  Receive Date: 20221116
  Receipt Date: 20221116
  Transmission Date: 20230113
  Serious: No
  Sender: FDA-Public Use
  Company Number: US-GSKCCFUS-Case-01551269_AE-87779

PATIENT
  Sex: Female

DRUGS (3)
  1. PROPAFENONE HYDROCHLORIDE [Suspect]
     Active Substance: PROPAFENONE HYDROCHLORIDE
     Indication: Ventricular tachycardia
     Dosage: UNK
     Dates: start: 2012
  2. RYTHMOL [Concomitant]
     Active Substance: PROPAFENONE HYDROCHLORIDE
     Indication: Ventricular tachycardia
     Dosage: 150 MG
  3. RYTHMOL SR [Concomitant]
     Active Substance: PROPAFENONE HYDROCHLORIDE
     Indication: Ventricular tachycardia
     Dosage: 150 MG

REACTIONS (1)
  - Drug ineffective [Unknown]
